FAERS Safety Report 14362280 (Version 1)
Quarter: 2018Q1

REPORT INFORMATION
  Report Type: Spontaneous
  Country: LT (occurrence: LT)
  Receive Date: 20180108
  Receipt Date: 20180108
  Transmission Date: 20180509
  Serious: Yes (Life-Threatening, Hospitalization)
  Sender: FDA-Public Use
  Company Number: LT-TEVA-2017-LT-842305

PATIENT
  Age: 53 Year
  Sex: Female

DRUGS (13)
  1. APREPITANT. [Interacting]
     Active Substance: APREPITANT
     Indication: PROPHYLAXIS OF NAUSEA AND VOMITING
     Dosage: 125MG
     Route: 048
     Dates: start: 2016
  2. FENTANYL. [Interacting]
     Active Substance: FENTANYL
     Indication: PAIN MANAGEMENT
     Dosage: 75MICROG/H; LONG-TERM USE
     Route: 065
  3. CYANOCOBALAMIN. [Concomitant]
     Active Substance: CYANOCOBALAMIN
     Dosage: 1000MICROG
     Route: 065
     Dates: start: 2016
  4. ONDANSETRON [Interacting]
     Active Substance: ONDANSETRON
     Indication: PROPHYLAXIS OF NAUSEA AND VOMITING
     Dosage: 8MG
     Route: 048
     Dates: start: 2016
  5. TRAMADOL. [Interacting]
     Active Substance: TRAMADOL
     Indication: PAIN MANAGEMENT
     Dosage: 100MG; LONG-TERM USE
     Route: 048
  6. ALPRAZOLAM. [Interacting]
     Active Substance: ALPRAZOLAM
     Indication: ANXIETY DISORDER
     Dosage: 0.5MG; LONG-TERM USE
     Route: 048
  7. DEXAMETHASONE. [Concomitant]
     Active Substance: DEXAMETHASONE
     Dosage: 4MG
     Route: 048
     Dates: start: 2016
  8. BETALOC ZOK [Concomitant]
     Active Substance: METOPROLOL SUCCINATE
     Indication: HYPERTENSION
     Dosage: 47.5MG; LONG-TERM USE
     Route: 048
  9. FOLIC ACID. [Concomitant]
     Active Substance: FOLIC ACID
     Dosage: 1000 MICROGRAM DAILY; 1000MICROG/DAY
     Route: 042
     Dates: start: 2016
  10. TIANEPTINE [Concomitant]
     Active Substance: TIANEPTINE
     Indication: DEPRESSION
     Dosage: 12.5MG; LONG-TERM USE
     Route: 048
  11. PEMETREXED. [Concomitant]
     Active Substance: PEMETREXED
     Indication: PLEURAL MESOTHELIOMA
     Route: 065
     Dates: start: 2015, end: 2016
  12. CISPLATIN. [Suspect]
     Active Substance: CISPLATIN
     Indication: PLEURAL MESOTHELIOMA
     Dosage: INITIAL DOSE WAS UNKNOWN; HOWEVER, AT THE TIME OF SECOND CYCLE, SHE RECEIVED 150 MG
     Route: 041
     Dates: start: 2015, end: 2016
  13. MANNITOL. [Concomitant]
     Active Substance: MANNITOL
     Dosage: 1000ML, 10%
     Route: 042
     Dates: start: 2016

REACTIONS (3)
  - Cardio-respiratory arrest [Recovered/Resolved]
  - Circulatory collapse [Recovered/Resolved]
  - Drug interaction [Recovered/Resolved]

NARRATIVE: CASE EVENT DATE: 2016
